FAERS Safety Report 6112529-9 (Version None)
Quarter: 2009Q1

REPORT INFORMATION
  Report Type: 
  Country: None (occurrence: None)
  Receive Date: 20090310
  Receipt Date: 20090225
  Transmission Date: 20090719
  Serious: Yes (Hospitalization)
  Sender: FDA-Public Use
  Company Number: GXKR2009TR02409

PATIENT
  Age: 25 Year
  Sex: Male

DRUGS (1)
  1. ERGOTAMINE/CAFFEINE (NGX) (CAFFEINE, ERGOTAMINE) UNKNOWN, 0.74/80MG [Suspect]
     Indication: MIGRAINE
     Dosage: 1 DF, QID, UNKNOWN

REACTIONS (6)
  - HYPOTENSION [None]
  - PAIN IN EXTREMITY [None]
  - PALLOR [None]
  - PERIPHERAL COLDNESS [None]
  - PULSE ABSENT [None]
  - VASOSPASM [None]
